FAERS Safety Report 8614249-5 (Version None)
Quarter: 2012Q3

REPORT INFORMATION
  Report Type: 
  Country: None (occurrence: None)
  Receive Date: 20120823
  Receipt Date: 20120815
  Transmission Date: 20120928
  Serious: Yes (Hospitalization, Other)
  Sender: FDA-Public Use
  Company Number: NL-GENZYME-CLOF-1002252

PATIENT
  Sex: Female
  Weight: 52 kg

DRUGS (3)
  1. CYCLOPHOSPHAMIDE [Suspect]
     Indication: PRODUCT USED FOR UNKNOWN INDICATION
     Dosage: 4380 MG, UNK
     Route: 042
     Dates: start: 20120211
  2. CLOFARABINE [Suspect]
     Indication: PRODUCT USED FOR UNKNOWN INDICATION
     Dosage: UNK
     Route: 065
  3. SULFAMETHOXAZOLE TRIMETHOPRIM [Concomitant]
     Indication: PROPHYLAXIS
     Dosage: 480 MG, UNK
     Route: 048
     Dates: start: 20120101

REACTIONS (4)
  - CHILLS [None]
  - PYREXIA [None]
  - GRAFT VERSUS HOST DISEASE [None]
  - STAPHYLOCOCCAL INFECTION [None]
